FAERS Safety Report 8043429-5 (Version None)
Quarter: 2012Q1

REPORT INFORMATION
  Report Type: 
  Country: None (occurrence: None)
  Receive Date: 20120112
  Receipt Date: 20120110
  Transmission Date: 20120608
  Serious: Yes (Death, Hospitalization, Other)
  Sender: FDA-Public Use
  Company Number: US-CELGENEUS-163-21880-11080553

PATIENT
  Sex: Female

DRUGS (23)
  1. METOPROLOL [Concomitant]
     Dosage: 25 MILLIGRAM
     Route: 065
  2. ASPIRIN [Concomitant]
     Indication: THROMBOSIS PROPHYLAXIS
     Dosage: 81 MILLIGRAM
     Route: 065
  3. CALCIUM [Concomitant]
     Dosage: 1210 MILLIGRAM
     Route: 048
  4. BENADRYL [Concomitant]
     Dosage: 25 MILLIGRAM
     Route: 065
  5. FLOVENT [Concomitant]
     Dosage: 110 MILLIGRAM
     Route: 065
  6. METOPROLOL [Concomitant]
     Dosage: 50 MILLIGRAM
     Route: 048
     Dates: start: 20110705
  7. BIDIL [Concomitant]
     Dosage: 20/37.5
     Route: 065
  8. REVLIMID [Suspect]
     Indication: MYELODYSPLASTIC SYNDROME
     Dosage: 5 MILLIGRAM
     Route: 048
     Dates: start: 20101020, end: 20110810
  9. DILTIAZEM HCL [Concomitant]
     Dosage: 180 MILLIGRAM
     Route: 048
  10. OMEPRAZOLE [Concomitant]
     Indication: GASTRIC ULCER
     Dosage: 20 MILLIGRAM
     Route: 048
  11. SPIRIVA [Concomitant]
     Dosage: 18 MICROGRAM
     Route: 065
  12. BUSPAR [Concomitant]
     Dosage: 5 MILLIGRAM
     Route: 065
  13. FENTANYL [Concomitant]
     Indication: PAIN MANAGEMENT
     Dosage: 12 MILLIGRAM
     Route: 065
     Dates: start: 20110411
  14. ARICEPT [Concomitant]
     Dosage: 5 MILLIGRAM
     Route: 048
  15. NEURONTIN [Concomitant]
     Dosage: 100 MILLIGRAM
     Route: 048
  16. VITAMIN B-12 [Concomitant]
     Route: 065
  17. MULTI-VITAMINS [Concomitant]
     Route: 065
  18. COMBIVENT [Concomitant]
     Route: 065
  19. AVAPRO [Concomitant]
     Dosage: 150 MILLIGRAM
     Route: 065
  20. BENICAR [Concomitant]
     Dosage: 20 MILLIGRAM
     Route: 048
  21. VITAMIN C [Concomitant]
     Route: 065
  22. METFORMIN HCL [Concomitant]
     Dosage: 500 MILLIGRAM
     Route: 048
  23. COD LIVER OIL [Concomitant]
     Route: 065

REACTIONS (6)
  - THROMBOPHLEBITIS SUPERFICIAL [None]
  - CANDIDIASIS [None]
  - SPINAL COLUMN STENOSIS [None]
  - THROMBOCYTOPENIA [None]
  - PANCYTOPENIA [None]
  - ACUTE LEUKAEMIA [None]
